FAERS Safety Report 22107575 (Version 1)
Quarter: 2023Q1

REPORT INFORMATION
  Report Type: Spontaneous
  Country: US (occurrence: US)
  Receive Date: 20230317
  Receipt Date: 20230317
  Transmission Date: 20230417
  Serious: Yes (Other)
  Sender: FDA-Public Use
  Company Number: US-AUROBINDO-AUR-APL-2023-011792

PATIENT
  Age: 12 Year
  Sex: Female

DRUGS (2)
  1. CLOBETASOL PROPIONATE [Suspect]
     Active Substance: CLOBETASOL PROPIONATE
     Indication: Alopecia areata
     Dosage: UNK
     Route: 065
  2. TOFACITINIB [Concomitant]
     Active Substance: TOFACITINIB
     Indication: Alopecia areata
     Dosage: 10 MILLIGRAM, TWO TIMES A DAY
     Route: 048

REACTIONS (1)
  - Drug ineffective [Unknown]
